FAERS Safety Report 9297804 (Version 1)
Quarter: 2013Q2

REPORT INFORMATION
  Report Type: Report from Study
  Country: AU (occurrence: AU)
  Receive Date: 20130520
  Receipt Date: 20130520
  Transmission Date: 20140414
  Serious: Yes (Death)
  Sender: FDA-Public Use
  Company Number: PHHY2013AU049548

PATIENT
  Age: 75 Year
  Sex: Female

DRUGS (3)
  1. ACLASTA [Suspect]
     Dosage: UNK
     Route: 042
     Dates: start: 20090504
  2. ACLASTA [Suspect]
     Dosage: UNK
     Route: 042
     Dates: start: 20100520
  3. ACLASTA [Suspect]
     Dosage: UNK
     Route: 042
     Dates: start: 20110513

REACTIONS (1)
  - Death [Fatal]
